FAERS Safety Report 4902498-9 (Version None)
Quarter: 2006Q1

REPORT INFORMATION
  Report Type: 
  Country: None (occurrence: None)
  Receive Date: 20060207
  Receipt Date: 20050311
  Transmission Date: 20060701
  Serious: Yes (Hospitalization)
  Sender: FDA-Public Use
  Company Number: CA-MERCK-0503CAN00171

PATIENT
  Age: 50 Year
  Sex: Male
  Weight: 83 kg

DRUGS (8)
  1. VIOXX [Suspect]
     Indication: OSTEOARTHRITIS
     Route: 048
     Dates: start: 20000303, end: 20000501
  2. VIOXX [Suspect]
     Route: 048
     Dates: start: 20000606, end: 20001001
  3. VIOXX [Suspect]
     Route: 048
     Dates: start: 20001023, end: 20020801
  4. RANITIDINE [Concomitant]
     Route: 065
     Dates: start: 20001010
  5. CELECOXIB [Concomitant]
     Indication: PAIN
     Route: 065
     Dates: start: 20000517, end: 20000601
  6. CELECOXIB [Concomitant]
     Indication: ARTHRITIS
     Route: 065
     Dates: start: 20000517, end: 20000601
  7. DICLOFENAC SODIUM AND MISOPROSTOL [Concomitant]
     Route: 065
     Dates: start: 20000201
  8. ACETAMINOPHEN AND METHOCARBAMOL [Concomitant]
     Route: 065

REACTIONS (20)
  - AKINESIA [None]
  - BLOOD PRESSURE INCREASED [None]
  - BRONCHITIS [None]
  - CHEST DISCOMFORT [None]
  - CORONARY ARTERY DISEASE [None]
  - CORONARY ARTERY OCCLUSION [None]
  - CORONARY ARTERY STENOSIS [None]
  - ELECTROCARDIOGRAM ST SEGMENT ELEVATION [None]
  - ELECTROCARDIOGRAM T WAVE PEAKED [None]
  - EMOTIONAL DISTRESS [None]
  - GASTROOESOPHAGEAL REFLUX DISEASE [None]
  - HERNIA [None]
  - MYOCARDIAL INFARCTION [None]
  - MYOCARDIAL ISCHAEMIA [None]
  - PAIN IN EXTREMITY [None]
  - PLATELET AGGREGATION INCREASED [None]
  - SINUS BRADYCARDIA [None]
  - SINUSITIS [None]
  - VENTRICULAR DYSFUNCTION [None]
  - VENTRICULAR DYSKINESIA [None]
